FAERS Safety Report 16009806 (Version 4)
Quarter: 2022Q3

REPORT INFORMATION
  Report Type: Spontaneous
  Country: US (occurrence: US)
  Receive Date: 20190227
  Receipt Date: 20220911
  Transmission Date: 20221026
  Serious: No
  Sender: FDA-Public Use
  Company Number: US-SA-2019SA054293

PATIENT
  Age: 66 Year
  Sex: Male

DRUGS (2)
  1. CERDELGA [Suspect]
     Active Substance: ELIGLUSTAT
     Indication: Gaucher^s disease
     Dosage: 84 MG, BID
     Route: 048
     Dates: start: 20141231
  2. CERDELGA [Suspect]
     Active Substance: ELIGLUSTAT
     Indication: Lipidosis
     Dosage: 84 MG, BID
     Route: 048
     Dates: start: 20181219

REACTIONS (1)
  - COVID-19 [Unknown]

NARRATIVE: CASE EVENT DATE: 20220101
